FAERS Safety Report 4766163-3 (Version None)
Quarter: 2005Q3

REPORT INFORMATION
  Report Type: 
  Country: None (occurrence: None)
  Receive Date: 20050912
  Receipt Date: 20050413
  Transmission Date: 20060218
  Serious: Yes (Death, Other)
  Sender: FDA-Public Use
  Company Number: US-MERCK-0504USA02184

PATIENT
  Age: 72 Year
  Sex: Male
  Weight: 92 kg

DRUGS (7)
  1. VIOXX [Suspect]
     Indication: ARTHRITIS
     Route: 048
     Dates: start: 19991117, end: 20040429
  2. VIOXX [Suspect]
     Route: 048
  3. PAXIL [Concomitant]
     Route: 065
  4. NEXIUM [Concomitant]
     Route: 065
  5. ADVAIR DISKUS 100/50 [Concomitant]
     Route: 065
  6. CLARINEX [Concomitant]
     Route: 065
  7. VIAGRA [Concomitant]
     Route: 065

REACTIONS (7)
  - CARDIOVASCULAR DISORDER [None]
  - DEATH [None]
  - DRUG INEFFECTIVE [None]
  - MYOCARDIAL INFARCTION [None]
  - PNEUMONIA [None]
  - ROTATOR CUFF SYNDROME [None]
  - URTICARIA [None]
